FAERS Safety Report 18009209 (Version 1)
Quarter: 2020Q3

REPORT INFORMATION
  Report Type: Spontaneous
  Country: US (occurrence: US)
  Receive Date: 20200710
  Receipt Date: 20200710
  Transmission Date: 20201103
  Serious: Yes (Hospitalization)
  Sender: FDA-Public Use
  Company Number: US-SAOL THERAPEUTICS-2020SAO00109

PATIENT
  Age: 22 Year
  Sex: Male
  Weight: 59.9 kg

DRUGS (3)
  1. LIORESAL [Suspect]
     Active Substance: BACLOFEN
     Indication: QUADRIPLEGIA
     Dosage: 954.1 ?G, \DAY
     Route: 037
     Dates: start: 20190301
  2. LIORESAL [Suspect]
     Active Substance: BACLOFEN
     Indication: CEREBRAL PALSY
     Dosage: 458 ?G, \DAY WITH FLEX STEPS
     Route: 037
  3. LIORESAL [Suspect]
     Active Substance: BACLOFEN
     Indication: DYSTONIA

REACTIONS (3)
  - Drug withdrawal syndrome [Recovered/Resolved]
  - Rhabdomyolysis [Recovered/Resolved]
  - Pyrexia [Recovered/Resolved]

NARRATIVE: CASE EVENT DATE: 202003
